FAERS Safety Report 21717623 (Version 1)
Quarter: 2022Q4

REPORT INFORMATION
  Report Type: Spontaneous
  Country: US (occurrence: US)
  Receive Date: 20221212
  Receipt Date: 20221212
  Transmission Date: 20230112
  Serious: No
  Sender: FDA-Public Use
  Company Number: US-GBT-014955

PATIENT
  Sex: Male
  Weight: 27.216 kg

DRUGS (1)
  1. OXBRYTA [Suspect]
     Active Substance: VOXELOTOR
     Indication: Sickle cell disease
     Route: 048
     Dates: start: 20220512

REACTIONS (4)
  - Sickle cell anaemia with crisis [Recovered/Resolved]
  - Weight increased [Unknown]
  - Abdominal pain upper [Unknown]
  - Diarrhoea [Unknown]
